FAERS Safety Report 12625599 (Version 1)
Quarter: 2016Q3

REPORT INFORMATION
  Report Type: Spontaneous
  Country: US (occurrence: US)
  Receive Date: 20160805
  Receipt Date: 20160805
  Transmission Date: 20161109
  Serious: Yes (Hospitalization, Other)
  Sender: FDA-Public Use
  Company Number: US-GLAXOSMITHKLINE-US2016111507

PATIENT
  Sex: Male

DRUGS (7)
  1. CALCIUM SUPPLEMENT [Concomitant]
     Active Substance: CALCIUM
  2. AVODART [Suspect]
     Active Substance: DUTASTERIDE
     Indication: PROSTATOMEGALY
     Dosage: 0.5 MG DAILY
     Route: 048
  3. REQUIP XL [Suspect]
     Active Substance: ROPINIROLE HYDROCHLORIDE
     Indication: PARKINSON^S DISEASE
     Dosage: 8 MG, QD
     Route: 048
     Dates: start: 2009
  4. AMLODIPINE [Concomitant]
     Active Substance: AMLODIPINE BESYLATE
  5. NUPLAZID [Concomitant]
     Active Substance: PIMAVANSERIN TARTRATE
  6. CARBIDOPA-LEVODOPA [Concomitant]
     Active Substance: CARBIDOPA\LEVODOPA
  7. ASPIRIN. [Concomitant]
     Active Substance: ASPIRIN

REACTIONS (12)
  - Blood count abnormal [Recovering/Resolving]
  - Asthenia [Not Recovered/Not Resolved]
  - Plasma cell myeloma [Not Recovered/Not Resolved]
  - Chemotherapy [Unknown]
  - Joint swelling [Unknown]
  - Haemorrhage [Unknown]
  - Gait disturbance [Not Recovered/Not Resolved]
  - Transfusion [Unknown]
  - Swelling [Recovered/Resolved]
  - Peripheral swelling [Unknown]
  - Anaemia [Recovering/Resolving]
  - Condition aggravated [Not Recovered/Not Resolved]

NARRATIVE: CASE EVENT DATE: 2015
